FAERS Safety Report 15666113 (Version 1)
Quarter: 2018Q4

REPORT INFORMATION
  Report Type: Spontaneous
  Country: TR (occurrence: TR)
  Receive Date: 20181128
  Receipt Date: 20181128
  Transmission Date: 20190205
  Serious: Yes (Hospitalization)
  Sender: FDA-Public Use
  Company Number: TR-MYLANLABS-2018M1087947

PATIENT
  Age: 14 Year
  Sex: Male

DRUGS (1)
  1. AMPICILLIN/SULBACTAM [Suspect]
     Active Substance: AMPICILLIN SODIUM\SULBACTAM SODIUM
     Indication: PNEUMONIA
     Route: 042

REACTIONS (1)
  - Symmetrical drug-related intertriginous and flexural exanthema [Recovered/Resolved]
